FAERS Safety Report 26104370 (Version 1)
Quarter: 2025Q4

REPORT INFORMATION
  Report Type: Spontaneous
  Country: EU (occurrence: EU)
  Receive Date: 20251130
  Receipt Date: 20251130
  Transmission Date: 20260118
  Serious: Yes (Other)
  Sender: ALEXION PHARMACEUTICALS
  Company Number: EU-AstraZeneca-CH-01003099A

PATIENT
  Age: 80 Year
  Sex: Female

DRUGS (1)
  1. CALQUENCE [Suspect]
     Active Substance: ACALABRUTINIB
     Dosage: 100 MILLIGRAM, Q12H

REACTIONS (2)
  - Malignant neoplasm progression [Unknown]
  - Malignant neoplasm progression [Unknown]
